FAERS Safety Report 14116584 (Version 1)
Quarter: 2017Q4

REPORT INFORMATION
  Report Type: Spontaneous
  Country: US (occurrence: US)
  Receive Date: 20171023
  Receipt Date: 20171023
  Transmission Date: 20180321
  Serious: No
  Sender: FDA-Public Use
  Company Number: US-DEPOMED, INC.-US-2017DEP000402

PATIENT

DRUGS (4)
  1. NUCYNTA [Suspect]
     Active Substance: TAPENTADOL HYDROCHLORIDE
     Dosage: 50 MG, QD, AT EVENING
     Route: 048
     Dates: end: 201701
  2. NUCYNTA ER [Suspect]
     Active Substance: TAPENTADOL HYDROCHLORIDE
     Indication: PAIN
     Dosage: 50 MG, QD, IN THE MORNING
     Route: 048
  3. NUCYNTA [Suspect]
     Active Substance: TAPENTADOL HYDROCHLORIDE
     Indication: PAIN
     Dosage: 50 MG, BID, 12 HOURS APART
     Route: 048
     Dates: start: 201701
  4. NUCYNTA [Suspect]
     Active Substance: TAPENTADOL HYDROCHLORIDE
     Dosage: 50 MG, BID, ONCE IN THE MORNING AND IN EVENING
     Route: 048

REACTIONS (6)
  - Unevaluable event [Unknown]
  - Medication error [Recovered/Resolved]
  - Visual impairment [Unknown]
  - Pain [Unknown]
  - Drug ineffective [Unknown]
  - Product use in unapproved indication [Not Recovered/Not Resolved]
